FAERS Safety Report 5608735-X (Version None)
Quarter: 2008Q1

REPORT INFORMATION
  Report Type: 
  Country: None (occurrence: None)
  Receive Date: 20080128
  Receipt Date: 20080128
  Transmission Date: 20080703
  Serious: Yes (Hospitalization, Other)
  Sender: FDA-Public Use
  Company Number: None

PATIENT
  Age: 70 Year
  Sex: Male

DRUGS (2)
  1. BUPIVACAINE [Suspect]
     Indication: PAIN MANAGEMENT
     Dates: start: 20071217
  2. KENALOG-40 [Suspect]
     Dates: start: 20071217

REACTIONS (2)
  - INJECTION SITE ABSCESS [None]
  - STAPHYLOCOCCAL ABSCESS [None]
